FAERS Safety Report 15579643 (Version 1)
Quarter: 2018Q4

REPORT INFORMATION
  Report Type: Spontaneous
  Country: IT (occurrence: IT)
  Receive Date: 20181102
  Receipt Date: 20181102
  Transmission Date: 20190205
  Serious: Yes (Other)
  Sender: FDA-Public Use
  Company Number: IT-GLAXOSMITHKLINE-IT2018GSK198821

PATIENT
  Age: 36 Year
  Sex: Male

DRUGS (4)
  1. VENTOLIN [Suspect]
     Active Substance: ALBUTEROL SULFATE
     Indication: PRODUCT USED FOR UNKNOWN INDICATION
     Dosage: 100 ?G, QD
  2. FLUTIFORMO [Suspect]
     Active Substance: FLUTICASONE PROPIONATE\FORMOTEROL FUMARATE
     Indication: PRODUCT USED FOR UNKNOWN INDICATION
     Dosage: UNK UNK, BID
  3. KESTINE [Concomitant]
     Active Substance: EBASTINE
     Indication: ALLERGIC COUGH
     Dosage: UNK
  4. RINOCLENIL [Suspect]
     Active Substance: BECLOMETHASONE
     Indication: PRODUCT USED FOR UNKNOWN INDICATION
     Dosage: UNK UNK, TID

REACTIONS (7)
  - Peptic ulcer haemorrhage [Unknown]
  - Drug dependence [Unknown]
  - Headache [Unknown]
  - Oral discomfort [Unknown]
  - Intentional product misuse [Unknown]
  - Peptic ulcer [Unknown]
  - Dry mouth [Unknown]
